FAERS Safety Report 5771566-4 (Version None)
Quarter: 2008Q2

REPORT INFORMATION
  Report Type: 
  Country: None (occurrence: None)
  Receive Date: 20080611
  Receipt Date: 20080526
  Transmission Date: 20081010
  Serious: Yes (Other)
  Sender: FDA-Public Use
  Company Number: 8033175

PATIENT

DRUGS (2)
  1. LEVETIRACETAM [Suspect]
     Dosage: TRP
     Route: 064
  2. CARBAMAZEPINE [Concomitant]

REACTIONS (7)
  - ACIDOSIS [None]
  - ASPHYXIA [None]
  - DRUG DEPENDENCE [None]
  - DRUG WITHDRAWAL SYNDROME [None]
  - MATERNAL DRUGS AFFECTING FOETUS [None]
  - NEONATAL DISORDER [None]
  - TREMOR NEONATAL [None]
